FAERS Safety Report 19452977 (Version 2)
Quarter: 2021Q2

REPORT INFORMATION
  Report Type: Spontaneous
  Country: DE (occurrence: DE)
  Receive Date: 20210623
  Receipt Date: 20210630
  Transmission Date: 20210717
  Serious: Yes (Other)
  Sender: FDA-Public Use
  Company Number: DE-BAXTER-2021BAX016648

PATIENT

DRUGS (10)
  1. ALEMTUZUMAB [Suspect]
     Active Substance: ALEMTUZUMAB
     Indication: T-CELL PROLYMPHOCYTIC LEUKAEMIA
     Dosage: 30 MG/48 HOURS WEEKLY
     Route: 041
  2. BUSULFAN. [Suspect]
     Active Substance: BUSULFAN
     Indication: IMMUNOSUPPRESSANT DRUG THERAPY
  3. FLUDARABINE PHOSPHATE. [Suspect]
     Active Substance: FLUDARABINE PHOSPHATE
     Indication: IMMUNOSUPPRESSANT DRUG THERAPY
  4. ENDOXAN 1G [Suspect]
     Active Substance: CYCLOPHOSPHAMIDE
     Indication: T-CELL PROLYMPHOCYTIC LEUKAEMIA
     Dosage: UNK
     Route: 065
  5. CYCLOSPORINE. [Suspect]
     Active Substance: CYCLOSPORINE
     Indication: PROPHYLAXIS AGAINST GRAFT VERSUS HOST DISEASE
     Dosage: QD; TARGET LEVEL OF 200 NG/ML/DAY
     Route: 065
  6. ALEMTUZUMAB [Suspect]
     Active Substance: ALEMTUZUMAB
     Indication: IMMUNOSUPPRESSANT DRUG THERAPY
     Dosage: QW; 3,10,30 MG/48 HOURS WEEKLY
     Route: 041
  7. MYCOPHENOLATE MOFETIL. [Suspect]
     Active Substance: MYCOPHENOLATE MOFETIL
     Indication: PROPHYLAXIS AGAINST GRAFT VERSUS HOST DISEASE
     Dosage: UNK UNK, QD
     Route: 065
  8. BUSULFAN. [Suspect]
     Active Substance: BUSULFAN
     Indication: T-CELL PROLYMPHOCYTIC LEUKAEMIA
     Route: 065
  9. FLUDARABINE PHOSPHATE. [Suspect]
     Active Substance: FLUDARABINE PHOSPHATE
     Indication: T-CELL PROLYMPHOCYTIC LEUKAEMIA
     Route: 065
  10. ENDOXAN 1G [Suspect]
     Active Substance: CYCLOPHOSPHAMIDE
     Indication: IMMUNOSUPPRESSANT DRUG THERAPY

REACTIONS (1)
  - Cytomegalovirus infection reactivation [Unknown]
